FAERS Safety Report 4340214-2 (Version None)
Quarter: 2004Q1

REPORT INFORMATION
  Report Type: 
  Country: None (occurrence: None)
  Receive Date: 20040329
  Receipt Date: 20040206
  Transmission Date: 20041129
  Serious: No
  Sender: FDA-Public Use
  Company Number: 04P-163-0249577-00

PATIENT
  Age: 74 Year
  Sex: Female
  Weight: 77.1115 kg

DRUGS (7)
  1. HUMIRA [Suspect]
     Indication: RHEUMATOID ARTHRITIS
     Dosage: 40 MG, 1 IN 2 WK, SUBCUTANEOUS
     Route: 058
     Dates: start: 20030401
  2. MEDROXYPROGESTERONE ACETATE [Concomitant]
  3. ROFECOXIB [Concomitant]
  4. CONJUGATED ESTROGEN [Concomitant]
  5. LISINOPRIL [Concomitant]
  6. TOCOPHEROL CONCENTRATE CAP [Concomitant]
  7. ASPIRIN [Concomitant]

REACTIONS (1)
  - INFECTION [None]
